FAERS Safety Report 10268593 (Version 1)
Quarter: 2014Q2

REPORT INFORMATION
  Report Type: Spontaneous
  Country: JP (occurrence: JP)
  Receive Date: 20140630
  Receipt Date: 20140630
  Transmission Date: 20141212
  Serious: Yes (Other)
  Sender: FDA-Public Use
  Company Number: JP-TEVA-491700USA

PATIENT
  Sex: 0

DRUGS (1)
  1. BENDAMUSTINE HYDROCHLORIDE [Suspect]
     Indication: LYMPHOMA
     Route: 042

REACTIONS (3)
  - Pyrexia [Recovered/Resolved]
  - Rash generalised [Recovered/Resolved]
  - C-reactive protein increased [Recovered/Resolved]
